FAERS Safety Report 22521138 (Version 1)
Quarter: 2023Q2

REPORT INFORMATION
  Report Type: Spontaneous
  Country: CA (occurrence: CA)
  Receive Date: 20230605
  Receipt Date: 20230605
  Transmission Date: 20230722
  Serious: Yes (Other)
  Sender: FDA-Public Use
  Company Number: CA-PFIZER INC-202300177993

PATIENT
  Age: 62 Year
  Sex: Female

DRUGS (3)
  1. XELJANZ [Suspect]
     Active Substance: TOFACITINIB CITRATE
     Indication: Colitis ulcerative
     Dosage: 10 MG, 2X/DAY (8 WEEKS; MAINTENANCE 5MG BID)
     Route: 048
     Dates: start: 20230501
  2. AZATHIOPRINE [Concomitant]
     Active Substance: AZATHIOPRINE
  3. USTEKINUMAB [Concomitant]
     Active Substance: USTEKINUMAB

REACTIONS (2)
  - Condition aggravated [Unknown]
  - Urinary tract infection [Unknown]

NARRATIVE: CASE EVENT DATE: 20230501
